FAERS Safety Report 12482708 (Version 2)
Quarter: 2016Q4

REPORT INFORMATION
  Report Type: Spontaneous
  Country: US (occurrence: US)
  Receive Date: 20160620
  Receipt Date: 20161110
  Transmission Date: 20170207
  Serious: No
  Sender: FDA-Public Use
  Company Number: US-GLAXOSMITHKLINE-US2016086921

PATIENT
  Age: 62 Year
  Sex: Male

DRUGS (1)
  1. TRANSDERM SCOP [Suspect]
     Active Substance: SCOPOLAMINE
     Indication: MOTION SICKNESS
     Dosage: UNK

REACTIONS (5)
  - Inappropriate schedule of drug administration [Unknown]
  - Dry mouth [Recovered/Resolved]
  - Fatigue [Recovered/Resolved]
  - Vision blurred [Recovered/Resolved]
  - Feeling abnormal [Recovered/Resolved]
